FAERS Safety Report 7580378-0 (Version None)
Quarter: 2011Q2

REPORT INFORMATION
  Report Type: 
  Country: None (occurrence: None)
  Receive Date: 20110629
  Receipt Date: 20110617
  Transmission Date: 20111010
  Serious: Yes (Hospitalization)
  Sender: FDA-Public Use
  Company Number: US-JNJFOC-20110608691

PATIENT
  Sex: Female
  Weight: 145.15 kg

DRUGS (18)
  1. BACTRIM [Concomitant]
     Indication: PROPHYLAXIS
     Route: 048
  2. ALPHAGAN [Concomitant]
     Indication: INTRAOCULAR PRESSURE TEST
     Route: 047
  3. RECLAST [Concomitant]
     Indication: BONE DISORDER
     Route: 042
  4. VITAMIN D [Concomitant]
     Indication: NUTRITIONAL SUPPORT
     Route: 048
  5. ZETIA [Concomitant]
     Indication: BLOOD CHOLESTEROL
     Route: 048
  6. TRIAMCINOLONE [Concomitant]
     Indication: SKIN LESION
     Route: 061
  7. CADUET [Concomitant]
     Indication: BLOOD CHOLESTEROL
     Dosage: 40/10 MG DAILY
     Route: 048
  8. SPIRIVA [Concomitant]
     Indication: SARCOIDOSIS
     Route: 055
  9. HUMULIN R [Concomitant]
     Indication: TYPE 2 DIABETES MELLITUS
     Route: 058
  10. CELLCEPT [Concomitant]
     Indication: IMMUNOSUPPRESSION
     Route: 048
  11. POTASSIUM [Concomitant]
     Indication: HYPOKALAEMIA
     Route: 048
  12. IMURAN [Concomitant]
     Indication: IMMUNOSUPPRESSION
     Route: 048
  13. CADUET [Concomitant]
     Indication: BLOOD PRESSURE
     Dosage: 40/10 MG DAILY
     Route: 048
  14. LASIX [Concomitant]
     Indication: DIURETIC THERAPY
     Route: 048
  15. REMICADE [Suspect]
     Indication: SARCOIDOSIS
     Route: 042
     Dates: start: 20110101
  16. HUMULIN N [Concomitant]
     Indication: TYPE 2 DIABETES MELLITUS
     Route: 058
  17. PREDNISONE [Concomitant]
     Indication: SARCOIDOSIS
     Route: 048
     Dates: start: 20010101
  18. ADVAIR DISKUS 100/50 [Concomitant]
     Indication: SARCOIDOSIS
     Route: 055

REACTIONS (4)
  - BRONCHITIS [None]
  - DELIRIUM [None]
  - BLOOD GLUCOSE INCREASED [None]
  - RHINORRHOEA [None]
